FAERS Safety Report 8220455-4 (Version None)
Quarter: 2012Q1

REPORT INFORMATION
  Report Type: 
  Country: None (occurrence: None)
  Receive Date: 20120307
  Receipt Date: 20090521
  Transmission Date: 20120608
  Serious: No
  Sender: FDA-Public Use
  Company Number: PHEH2009US05425

PATIENT

DRUGS (2)
  1. OXYCODONE HCL [Concomitant]
  2. AFINITOR [Suspect]

REACTIONS (1)
  - ASTHENIA [None]
